FAERS Safety Report 15057161 (Version 1)
Quarter: 2018Q2

REPORT INFORMATION
  Report Type: Spontaneous
  Country: US (occurrence: US)
  Receive Date: 20180604
  Receipt Date: 20180604
  Transmission Date: 20180711
  Serious: No
  Sender: FDA-Public Use
  Company Number: None

PATIENT
  Age: 69 Year
  Sex: Female

DRUGS (1)
  1. BEXAROTENE CAP 75MG [Suspect]
     Active Substance: BEXAROTENE
     Dosage: 7 CAPSULES OF 75 MG
     Route: 048
     Dates: start: 20170604, end: 20180604

REACTIONS (1)
  - Faeces soft [None]

NARRATIVE: CASE EVENT DATE: 20170604
